FAERS Safety Report 6680281-4 (Version None)
Quarter: 2010Q2

REPORT INFORMATION
  Report Type: 
  Country: None (occurrence: None)
  Receive Date: 20100413
  Receipt Date: 20100407
  Transmission Date: 20101027
  Serious: Yes (Hospitalization)
  Sender: FDA-Public Use
  Company Number: FR-MERCK-0804FRA00052

PATIENT
  Age: 32 Year
  Sex: Male

DRUGS (13)
  1. PRIMAXIN [Suspect]
     Indication: SCLEROSING ENCAPSULATING PERITONITIS
     Route: 051
     Dates: start: 20080130, end: 20080219
  2. EPOETIN BETA [Concomitant]
     Route: 058
     Dates: start: 20030901, end: 20080101
  3. AMLODIPINE BESYLATE [Suspect]
     Indication: HYPERTENSION
     Route: 048
  4. ATENOLOL [Suspect]
     Indication: HYPERTENSION
     Route: 048
  5. RAMIPRIL [Suspect]
     Indication: HYPERTENSION
     Route: 048
  6. OFLOXACIN [Suspect]
     Indication: SCLEROSING ENCAPSULATING PERITONITIS
     Route: 051
     Dates: start: 20080125, end: 20080127
  7. VANCOMYCIN [Suspect]
     Indication: SCLEROSING ENCAPSULATING PERITONITIS
     Route: 051
     Dates: start: 20080127, end: 20080219
  8. TAMOXIFEN CITRATE [Suspect]
     Route: 048
     Dates: start: 20080201, end: 20080303
  9. FOLIC ACID [Concomitant]
     Route: 048
  10. SEVELAMER HYDROCHLORIDE [Concomitant]
     Route: 065
  11. SODIUM POLYSTYRENE SULFONATE [Concomitant]
     Route: 048
  12. CALCIUM CARBONATE [Concomitant]
     Route: 065
  13. EPOETIN BETA [Concomitant]
     Route: 065

REACTIONS (1)
  - APLASTIC ANAEMIA [None]
